FAERS Safety Report 10246259 (Version 1)
Quarter: 2014Q2

REPORT INFORMATION
  Report Type: Spontaneous
  Country: DE (occurrence: DE)
  Receive Date: 20140619
  Receipt Date: 20140619
  Transmission Date: 20141212
  Serious: Yes (Death, Life-Threatening)
  Sender: FDA-Public Use
  Company Number: DE-MYLANLABS-2014S1013552

PATIENT
  Age: 74 Year
  Sex: Female

DRUGS (6)
  1. RAMIPRIL [Suspect]
     Route: 048
     Dates: end: 20140320
  2. TAVOR [Concomitant]
     Route: 048
     Dates: start: 20140304, end: 20140311
  3. TAVOR [Concomitant]
     Route: 048
     Dates: start: 20140312, end: 20140320
  4. L-THYROXIN [Concomitant]
     Route: 048
     Dates: end: 20140320
  5. METFORMIN [Concomitant]
     Route: 048
     Dates: end: 20140320
  6. KALINOR [Concomitant]
     Route: 048
     Dates: start: 20140315, end: 20140320

REACTIONS (1)
  - Myocardial infarction [Fatal]
